FAERS Safety Report 7797416-2 (Version None)
Quarter: 2011Q4

REPORT INFORMATION
  Report Type: 
  Country: None (occurrence: None)
  Receive Date: 20111005
  Receipt Date: 20110928
  Transmission Date: 20120403
  Serious: Yes (Other)
  Sender: FDA-Public Use
  Company Number: BR-ABBOTT-11P-020-0859890-00

PATIENT
  Sex: Female
  Weight: 78 kg

DRUGS (11)
  1. HUMIRA [Suspect]
     Indication: RHEUMATOID ARTHRITIS
     Route: 058
     Dates: start: 20050101, end: 20110628
  2. FOLIC ACID [Concomitant]
     Indication: RHEUMATOID ARTHRITIS
     Route: 048
  3. CALCIUM CARBONATE [Concomitant]
     Indication: BONE DISORDER
     Route: 048
  4. SIMVASTATIN [Concomitant]
     Indication: BLOOD CHOLESTEROL INCREASED
     Route: 048
  5. METHOTREXATE [Concomitant]
     Indication: RHEUMATOID ARTHRITIS
     Route: 048
  6. ALENDRONATE SODIUM [Concomitant]
     Indication: BONE DISORDER
     Route: 048
  7. CLOXAZOLAM [Concomitant]
     Indication: INSOMNIA
     Route: 048
  8. PREDNISOLONE [Concomitant]
     Indication: RHEUMATOID ARTHRITIS
     Route: 048
  9. VENLAFAXINE HYDROCHLORIDE [Concomitant]
     Indication: DEPRESSION
     Route: 048
  10. NOCTIDEN [Concomitant]
     Indication: INSOMNIA
     Route: 048
  11. MENECOL [Concomitant]
     Indication: BLOOD CHOLESTEROL INCREASED
     Route: 048

REACTIONS (5)
  - LIMB CRUSHING INJURY [None]
  - MOTOR DYSFUNCTION [None]
  - BACK PAIN [None]
  - LIMB TRAUMATIC AMPUTATION [None]
  - SKIN INJURY [None]
